FAERS Safety Report 9202037 (Version 2)
Quarter: 2013Q4

REPORT INFORMATION
  Report Type: Spontaneous
  Country: US (occurrence: US)
  Receive Date: 20130401
  Receipt Date: 20131125
  Transmission Date: 20140711
  Serious: Yes (Other)
  Sender: FDA-Public Use
  Company Number: US-BAYER-2013-038391

PATIENT
  Age: 31 Year
  Sex: Female

DRUGS (6)
  1. YAZ [Suspect]
     Dosage: UNK
  2. YASMIN [Suspect]
     Dosage: UNK
  3. OCELLA [Suspect]
     Dosage: UNK
  4. LEVOXYL [Concomitant]
     Dosage: 75 MCG
     Dates: start: 20060605
  5. VICODIN ES [Concomitant]
     Dosage: UNK UNK, PRN
     Dates: start: 20060605
  6. RANITIDINE [Concomitant]
     Dosage: 150 MG, PRN
     Dates: start: 20060605

REACTIONS (5)
  - Gallbladder injury [None]
  - Cholelithiasis [None]
  - Injury [None]
  - Pain [None]
  - Pain [None]
